FAERS Safety Report 15057502 (Version 1)
Quarter: 2018Q2

REPORT INFORMATION
  Report Type: Spontaneous
  Country: US (occurrence: US)
  Receive Date: 20180625
  Receipt Date: 20180625
  Transmission Date: 20180711
  Serious: Yes (Other)
  Sender: FDA-Public Use
  Company Number: US-BIOGEN-2018BI00596651

PATIENT
  Sex: Female

DRUGS (1)
  1. AVONEX [Suspect]
     Active Substance: INTERFERON BETA-1A
     Indication: MULTIPLE SCLEROSIS
     Route: 065
     Dates: start: 19970401

REACTIONS (4)
  - Middle ear effusion [Recovered/Resolved]
  - Pharyngitis streptococcal [Not Recovered/Not Resolved]
  - Pulmonary oedema [Recovered/Resolved]
  - Dysphonia [Not Recovered/Not Resolved]
